FAERS Safety Report 13738577 (Version 2)
Quarter: 2018Q2

REPORT INFORMATION
  Report Type: Spontaneous
  Country: US (occurrence: US)
  Receive Date: 20170710
  Receipt Date: 20180627
  Transmission Date: 20180711
  Serious: Yes (Hospitalization, Other)
  Sender: FDA-Public Use
  Company Number: US-SAOL THERAPEUTICS-2016SAO01154

PATIENT
  Age: 32 Year
  Sex: Female

DRUGS (7)
  1. LIORESAL [Suspect]
     Active Substance: BACLOFEN
     Indication: CEREBRAL PALSY
     Dosage: UNK
  2. PSYCH MEDICATIONS (NOT IDENTIFIED) [Concomitant]
  3. LIORESAL [Suspect]
     Active Substance: BACLOFEN
     Indication: CEREBRAL PALSY
  4. GABAPENTIN. [Concomitant]
     Active Substance: GABAPENTIN
     Indication: NEURALGIA
     Dosage: 800 MG, UNK
     Route: 048
  5. LIORESAL [Suspect]
     Active Substance: BACLOFEN
     Indication: MUSCLE SPASTICITY
     Dosage: 399 ?G, \DAY
     Route: 037
  6. LIORESAL [Suspect]
     Active Substance: BACLOFEN
     Indication: MUSCLE SPASTICITY
     Dosage: 330 ?G,\DAY
     Route: 037
  7. CLONIDINE. [Suspect]
     Active Substance: CLONIDINE
     Route: 037

REACTIONS (12)
  - Seizure [Unknown]
  - False positive investigation result [Unknown]
  - Paraesthesia [Unknown]
  - Stress [Unknown]
  - Device malfunction [Unknown]
  - Medical device site pain [Unknown]
  - Overdose [Unknown]
  - Muscle spasms [Unknown]
  - Device dislocation [Unknown]
  - Back pain [Unknown]
  - Neuralgia [Unknown]
  - Therapy non-responder [Unknown]

NARRATIVE: CASE EVENT DATE: 20160425
